FAERS Safety Report 9689124 (Version 1)
Quarter: 2013Q4

REPORT INFORMATION
  Report Type: Spontaneous
  Country: US (occurrence: None)
  Receive Date: 20131113
  Receipt Date: 20131113
  Transmission Date: 20140711
  Serious: Yes (Hospitalization)
  Sender: FDA-Public Use
  Company Number: VALP20130011

PATIENT
  Age: 3 Year
  Sex: Male
  Weight: 16.4 kg

DRUGS (1)
  1. VALPROIC ACID [Suspect]
     Indication: EPILEPSY
     Route: 048

REACTIONS (6)
  - Immune thrombocytopenic purpura [None]
  - Epidermolysis bullosa [None]
  - Sjogren-Larsson syndrome [None]
  - Corneal scar [None]
  - Ulcerative keratitis [None]
  - Ichthyosis [None]
